FAERS Safety Report 5553952-0 (Version None)
Quarter: 2007Q4

REPORT INFORMATION
  Report Type: 
  Country: None (occurrence: None)
  Receive Date: 20071213
  Receipt Date: 20071203
  Transmission Date: 20080405
  Serious: No
  Sender: FDA-Public Use
  Company Number: CA-ELI_LILLY_AND_COMPANY-CA200711006278

PATIENT
  Sex: Male

DRUGS (1)
  1. CIALIS [Suspect]
     Indication: ERECTILE DYSFUNCTION
     Dosage: 20 MG, AS NEEDED
     Route: 048
     Dates: start: 20070801

REACTIONS (8)
  - DRUG INEFFECTIVE [None]
  - EJACULATION FAILURE [None]
  - HEADACHE [None]
  - PRURITUS [None]
  - SWELLING [None]
  - TINNITUS [None]
  - URTICARIA [None]
  - VISION BLURRED [None]
